FAERS Safety Report 17402150 (Version 8)
Quarter: 2020Q2

REPORT INFORMATION
  Report Type: Spontaneous
  Country: US (occurrence: US)
  Receive Date: 20200211
  Receipt Date: 20200519
  Transmission Date: 20200713
  Serious: Yes (Hospitalization, Other)
  Sender: FDA-Public Use
  Company Number: US-PFIZER INC-2019522920

PATIENT
  Age: 62 Year
  Sex: Male

DRUGS (1)
  1. SUTENT [Suspect]
     Active Substance: SUNITINIB MALATE
     Indication: PANCREATIC NEUROENDOCRINE TUMOUR
     Dosage: 25 MG, DAILY (1 CAP PER ORAL DAILY)
     Route: 048

REACTIONS (11)
  - Musculoskeletal discomfort [Unknown]
  - Asthenia [Unknown]
  - Fatigue [Unknown]
  - Platelet count decreased [Unknown]
  - Pain [Unknown]
  - Cervical vertebral fracture [Unknown]
  - White blood cell count decreased [Unknown]
  - Body temperature increased [Unknown]
  - Diarrhoea [Unknown]
  - Depression [Unknown]
  - Neoplasm progression [Unknown]
